FAERS Safety Report 7410935-3 (Version None)
Quarter: 2011Q1

REPORT INFORMATION
  Report Type: 
  Country: None (occurrence: None)
  Receive Date: 20110302
  Receipt Date: 20101201
  Transmission Date: 20110831
  Serious: No
  Sender: FDA-Public Use
  Company Number: 015082

PATIENT
  Sex: Female
  Weight: 54.4 kg

DRUGS (3)
  1. CIMZIA [Suspect]
     Indication: CROHN'S DISEASE
     Dosage: 400 MG EVERY 4 WEEK SUBCUTANEOUS
     Route: 058
     Dates: start: 20100501, end: 20100901
  2. CIMZIA [Suspect]
     Indication: CROHN'S DISEASE
     Dosage: 400 MG EVERY 4 WEEK SUBCUTANEOUS
     Route: 058
     Dates: start: 20101130
  3. PREDNISONE [Concomitant]

REACTIONS (4)
  - INJECTION SITE HAEMATOMA [None]
  - INJECTION SITE DISCOLOURATION [None]
  - INJECTION SITE PAIN [None]
  - INJECTION SITE SWELLING [None]
